FAERS Safety Report 16144220 (Version 7)
Quarter: 2019Q3

REPORT INFORMATION
  Report Type: Spontaneous
  Country: JP (occurrence: JP)
  Receive Date: 20190401
  Receipt Date: 20190731
  Transmission Date: 20191004
  Serious: No
  Sender: FDA-Public Use
  Company Number: PHHY2019JP072652

PATIENT
  Age: 52 Year
  Sex: Female
  Weight: 49 kg

DRUGS (14)
  1. EVEROLIMUS. [Suspect]
     Active Substance: EVEROLIMUS
     Indication: CLEAR CELL RENAL CELL CARCINOMA
     Dosage: 10 MG, QD
     Route: 048
     Dates: start: 20120607, end: 20130328
  2. PREDNISOLONE. [Interacting]
     Active Substance: PREDNISOLONE
     Dosage: 5 MG, BID
     Route: 048
     Dates: start: 20120603, end: 20121106
  3. LANSOPRAZOLE. [Interacting]
     Active Substance: LANSOPRAZOLE
     Indication: ABDOMINAL DISCOMFORT
     Dosage: 30 MG, QD
     Route: 048
     Dates: start: 20110727, end: 20121030
  4. DOMPERIDONE [Concomitant]
     Active Substance: DOMPERIDONE
     Indication: ABDOMINAL DISCOMFORT
     Dosage: 10 MG, TID
     Route: 048
  5. REBAMIPIDE [Concomitant]
     Active Substance: REBAMIPIDE
     Indication: ABDOMINAL DISCOMFORT
     Dosage: 100 MG, TID
     Route: 048
  6. INTERFERON [Concomitant]
     Active Substance: INTERFERON
     Indication: CLEAR CELL RENAL CELL CARCINOMA
     Dosage: UNK
     Route: 065
  7. TEGRETOL [Interacting]
     Active Substance: CARBAMAZEPINE
     Indication: HYPOAESTHESIA
  8. TEGRETOL [Interacting]
     Active Substance: CARBAMAZEPINE
     Indication: EPILEPSY
  9. PREDNISOLONE. [Interacting]
     Active Substance: PREDNISOLONE
     Indication: EPILEPSY
     Dosage: 5 MG, QD
     Route: 048
  10. FERROUS CITRATE NA [Concomitant]
     Active Substance: SODIUM FERROUS CITRATE
     Indication: ANAEMIA
     Dosage: 50 MG, BID
     Route: 048
  11. PROBUCOL [Concomitant]
     Active Substance: PROBUCOL
     Indication: HYPERLIPIDAEMIA
     Dosage: 250 MG, BID
     Route: 048
  12. TEGRETOL [Interacting]
     Active Substance: CARBAMAZEPINE
     Indication: NEUROLOGICAL SYMPTOM
     Dosage: 100 MG, BID
     Route: 065
     Dates: start: 20120529, end: 20121030
  13. PREDNISOLONE. [Interacting]
     Active Substance: PREDNISOLONE
     Indication: BRAIN OEDEMA
     Dosage: 10 MG, QD
     Route: 048
  14. RABEPRAZOLE [Concomitant]
     Active Substance: RABEPRAZOLE
     Indication: PRODUCT USED FOR UNKNOWN INDICATION
     Dosage: UNK
     Route: 065

REACTIONS (2)
  - Drug interaction [Recovered/Resolved]
  - Product use in unapproved indication [Unknown]

NARRATIVE: CASE EVENT DATE: 20120620
